FAERS Safety Report 11300037 (Version 1)
Quarter: 2015Q3

REPORT INFORMATION
  Report Type: Spontaneous
  Country: US (occurrence: US)
  Receive Date: 20150722
  Receipt Date: 20150722
  Transmission Date: 20151125
  Serious: Yes (Other)
  Sender: FDA-Public Use
  Company Number: US-ELI_LILLY_AND_COMPANY-US201305004204

PATIENT
  Age: 64 Year
  Sex: Female

DRUGS (18)
  1. CARDIZEM [Concomitant]
     Active Substance: DILTIAZEM HYDROCHLORIDE
     Dosage: 30 MG, UNK
  2. BUMETANIDE. [Concomitant]
     Active Substance: BUMETANIDE
     Dosage: 1 MG, UNK
  3. LOSARTAN. [Concomitant]
     Active Substance: LOSARTAN
     Indication: HYPERTENSION
     Dosage: 50 MG, UNK
  4. MECLIZINE [Concomitant]
     Active Substance: MECLIZINE\MECLIZINE HYDROCHLORIDE
     Indication: DIZZINESS
  5. VICTOZA [Concomitant]
     Active Substance: LIRAGLUTIDE
     Indication: DIABETES MELLITUS
  6. WARFARIN [Concomitant]
     Active Substance: WARFARIN
     Dosage: 3 MG, 5/W
  7. LIPITOR [Concomitant]
     Active Substance: ATORVASTATIN CALCIUM
  8. JANUMET [Concomitant]
     Active Substance: METFORMIN HYDROCHLORIDE\SITAGLIPTIN PHOSPHATE
  9. TRILIPIX [Concomitant]
     Active Substance: FENOFIBRIC ACID
     Dosage: 135 MG, UNK
  10. WARFARIN [Concomitant]
     Active Substance: WARFARIN
     Dosage: 5 MG, 2/W
  11. HUMALOG [Concomitant]
     Active Substance: INSULIN LISPRO
     Indication: DIABETES MELLITUS
     Dosage: 40 U, BID
  12. METOPROLOL TARTRATE. [Concomitant]
     Active Substance: METOPROLOL TARTRATE
     Dosage: 50 MG, UNK
  13. LANTUS [Concomitant]
     Active Substance: INSULIN GLARGINE
     Dosage: 40 U, EACH EVENING
  14. HUMALOG [Concomitant]
     Active Substance: INSULIN LISPRO
     Dosage: 40 U, EACH EVENING
  15. EFFIENT [Suspect]
     Active Substance: PRASUGREL HYDROCHLORIDE
     Indication: STENT PLACEMENT
     Dosage: 10 MG, QD
     Dates: end: 20130502
  16. HUMALOG [Concomitant]
     Active Substance: INSULIN LISPRO
     Dosage: 20 U, EACH MORNING
  17. LANTUS [Concomitant]
     Active Substance: INSULIN GLARGINE
     Indication: DIABETES MELLITUS
     Dosage: 40 U, BID
  18. LANTUS [Concomitant]
     Active Substance: INSULIN GLARGINE
     Dosage: 20 U, EACH MORNING

REACTIONS (20)
  - Anaemia [Recovered/Resolved]
  - Asthenia [Recovered/Resolved]
  - Faeces discoloured [Recovered/Resolved]
  - Musculoskeletal stiffness [Recovered/Resolved]
  - Diarrhoea [Unknown]
  - Thrombosis [Unknown]
  - Rotator cuff syndrome [Not Recovered/Not Resolved]
  - Periarthritis [Unknown]
  - Blood glucose decreased [Recovered/Resolved]
  - Malaise [Unknown]
  - Dyspnoea [Unknown]
  - Pain [Unknown]
  - Haemorrhage [Unknown]
  - Blood pressure decreased [Recovering/Resolving]
  - Hyperhidrosis [Unknown]
  - Muscular weakness [Recovered/Resolved]
  - Muscle atrophy [Unknown]
  - Dizziness [Recovered/Resolved]
  - Epistaxis [Recovered/Resolved]
  - Gingival bleeding [Unknown]

NARRATIVE: CASE EVENT DATE: 201203
